FAERS Safety Report 9190221 (Version 1)
Quarter: 2013Q1

REPORT INFORMATION
  Report Type: Spontaneous
  Country: CH (occurrence: CH)
  Receive Date: 20130326
  Receipt Date: 20130326
  Transmission Date: 20140127
  Serious: Yes (Hospitalization)
  Sender: FDA-Public Use
  Company Number: CH-NOVOPROD-374014

PATIENT
  Age: 82 Year
  Sex: Male

DRUGS (4)
  1. NOVORAPID [Suspect]
     Indication: TYPE 2 DIABETES MELLITUS
     Dosage: UNK
     Route: 065
  2. NOVORAPID [Suspect]
  3. NOVOMIX 30 FLEXPEN [Suspect]
     Indication: TYPE 2 DIABETES MELLITUS
     Dosage: UNK
     Route: 065
  4. LANTUS [Suspect]
     Indication: TYPE 2 DIABETES MELLITUS

REACTIONS (2)
  - Concussion [Unknown]
  - Hypoglycaemia [Unknown]
